FAERS Safety Report 23673520 (Version 1)
Quarter: 2024Q1

REPORT INFORMATION
  Report Type: Spontaneous
  Country: US (occurrence: None)
  Receive Date: 20240325
  Receipt Date: 20240325
  Transmission Date: 20240410
  Serious: Yes (Other)
  Sender: FDA-Public Use
  Company Number: None

PATIENT
  Age: 21 Year
  Sex: Female
  Weight: 92.7 kg

DRUGS (2)
  1. WEGOVY [Suspect]
     Active Substance: SEMAGLUTIDE
  2. PHENTERMINE [Concomitant]
     Active Substance: PHENTERMINE

REACTIONS (4)
  - Alopecia [None]
  - Pain of skin [None]
  - Alopecia [None]
  - Livedo reticularis [None]

NARRATIVE: CASE EVENT DATE: 20240304
